FAERS Safety Report 7395435-1 (Version None)
Quarter: 2011Q2

REPORT INFORMATION
  Report Type: 
  Country: None (occurrence: None)
  Receive Date: 20110405
  Receipt Date: 20110401
  Transmission Date: 20111010
  Serious: Yes (Hospitalization)
  Sender: FDA-Public Use
  Company Number: GXKR2011DE01378

PATIENT
  Age: 67 Year
  Sex: Female

DRUGS (5)
  1. PANTOZOL [Concomitant]
     Dosage: 20 MG, QD
     Route: 048
  2. ENALAPRIL [Suspect]
     Dosage: 20 MG, QD
     Route: 048
  3. CITALOPRAM HYDROBROMIDE [Suspect]
     Dosage: 20 MG, QD
     Route: 048
     Dates: end: 20100812
  4. METOPROLOL [Concomitant]
     Dosage: 50 MG, QD
     Route: 048
  5. HYDROCHLOROTHIAZIDE [Suspect]
     Dosage: 25 MG, QD
     Route: 048

REACTIONS (2)
  - HYPONATRAEMIA [None]
  - HYPOKALAEMIA [None]
